FAERS Safety Report 20083636 (Version 1)
Quarter: 2021Q4

REPORT INFORMATION
  Report Type: Other
  Country: GB (occurrence: GB)
  Receive Date: 20211118
  Receipt Date: 20211118
  Transmission Date: 20220304
  Serious: No
  Sender: FDA-Public Use
  Company Number: GB-GLAXOSMITHKLINE-GBCH2021073594

PATIENT
  Age: 39 Year
  Sex: Male

DRUGS (4)
  1. SERTRALINE [Interacting]
     Active Substance: SERTRALINE HYDROCHLORIDE
     Indication: Product used for unknown indication
     Dosage: UNK
     Route: 065
  2. DEXTROAMPHETAMINE [Suspect]
     Active Substance: DEXTROAMPHETAMINE
     Indication: Product used for unknown indication
     Dosage: UNK
     Route: 065
  3. DEXTROMETHORPHAN HYDROBROMIDE [Interacting]
     Active Substance: DEXTROMETHORPHAN HYDROBROMIDE
     Indication: Oropharyngeal pain
     Dosage: UNK
     Route: 065
  4. DEXTROMETHORPHAN HYDROBROMIDE [Interacting]
     Active Substance: DEXTROMETHORPHAN HYDROBROMIDE
     Indication: Cough
     Dosage: 100 MILLILITER
     Route: 065

REACTIONS (3)
  - Somnolence [Unknown]
  - Drug interaction [Unknown]
  - Contraindicated product administered [Unknown]

NARRATIVE: CASE EVENT DATE: 20211019
